FAERS Safety Report 6864630-X (Version None)
Quarter: 2010Q3

REPORT INFORMATION
  Report Type: 
  Country: None (occurrence: None)
  Receive Date: 20100721
  Receipt Date: 20080527
  Transmission Date: 20110219
  Serious: No
  Sender: FDA-Public Use
  Company Number: US-PFIZER INC-2008027259

PATIENT
  Sex: Female
  Weight: 103.42 kg

DRUGS (5)
  1. CHANTIX [Suspect]
     Indication: SMOKING CESSATION THERAPY
     Dates: start: 20080301
  2. OXYCONTIN [Concomitant]
  3. PERCOCET [Concomitant]
     Dosage: 5 EVERY 1 DAYS
  4. MULTI-VITAMINS [Concomitant]
  5. VALIUM [Concomitant]

REACTIONS (4)
  - DIZZINESS [None]
  - FLUSHING [None]
  - HEADACHE [None]
  - NAUSEA [None]
